FAERS Safety Report 21654354 (Version 1)
Quarter: 2022Q4

REPORT INFORMATION
  Report Type: Spontaneous
  Country: None (occurrence: CN)
  Receive Date: 20221129
  Receipt Date: 20221129
  Transmission Date: 20230113
  Serious: Yes (Hospitalization)
  Sender: FDA-Public Use
  Company Number: CN-Jiangsu Hengrui Medicine Co., Ltd.-2135327

PATIENT
  Age: 67 Year
  Sex: Female
  Weight: 40 kg

DRUGS (2)
  1. DOCETAXEL [Suspect]
     Active Substance: DOCETAXEL
     Indication: Cervix carcinoma
     Route: 041
     Dates: start: 20221018, end: 20221018
  2. CARBOPLATIN [Suspect]
     Active Substance: CARBOPLATIN
     Route: 041
     Dates: start: 20221019, end: 20221019

REACTIONS (4)
  - Myelosuppression [Recovering/Resolving]
  - Agranulocytosis [Recovering/Resolving]
  - Pyrexia [Recovering/Resolving]
  - Hypoproteinaemia [Recovering/Resolving]

NARRATIVE: CASE EVENT DATE: 20221023
